FAERS Safety Report 8716480 (Version 3)
Quarter: 2013Q4

REPORT INFORMATION
  Report Type: Spontaneous
  Country: US (occurrence: US)
  Receive Date: 20120810
  Receipt Date: 20131213
  Transmission Date: 20140711
  Serious: No
  Sender: FDA-Public Use
  Company Number: US-009507513-1208USA002860

PATIENT
  Age: 43 Year
  Sex: Female
  Weight: 126.98 kg

DRUGS (3)
  1. NUVARING [Suspect]
     Indication: CONTRACEPTION
     Dosage: UNK
     Route: 067
     Dates: start: 201205
  2. NUVARING [Suspect]
     Indication: MENORRHAGIA
     Dosage: 3 HALF WEEKS IN 1 WEEK OUT
     Route: 067
     Dates: start: 2010
  3. TOPAMAX [Concomitant]

REACTIONS (3)
  - Metrorrhagia [Unknown]
  - Inappropriate schedule of drug administration [Unknown]
  - Incorrect drug administration duration [Unknown]
